FAERS Safety Report 10219832 (Version 1)
Quarter: 2014Q2

REPORT INFORMATION
  Report Type: Spontaneous
  Country: US (occurrence: None)
  Receive Date: 20140604
  Receipt Date: 20140604
  Transmission Date: 20141212
  Serious: No
  Sender: FDA-Public Use
  Company Number: None

PATIENT
  Age: 47 Year
  Sex: Male
  Weight: 90.36 kg

DRUGS (8)
  1. ALFA 2 INTERFERON 2B [Suspect]
     Dosage: 13.MU DOSE REDUCED FROM 20 MU TO 13.4 MU DUE TO AE.
     Dates: end: 20131108
  2. ENLAPRIL [Concomitant]
  3. LORATADINE [Concomitant]
  4. NAPROXEN [Concomitant]
  5. NORCO [Concomitant]
  6. PROCHLORPERAZINE [Concomitant]
  7. SYNTHROID [Concomitant]
  8. TYLENOL [Concomitant]

REACTIONS (1)
  - Palpitations [None]
